FAERS Safety Report 8482422-5 (Version None)
Quarter: 2012Q3

REPORT INFORMATION
  Report Type: 
  Country: None (occurrence: None)
  Receive Date: 20120702
  Receipt Date: 20120622
  Transmission Date: 20120928
  Serious: Yes (Death, Life-Threatening, Congenital Anomaly)
  Sender: FDA-Public Use
  Company Number: US-GLAXOSMITHKLINE-A0961197A

PATIENT
  Sex: Male

DRUGS (1)
  1. PAXIL [Suspect]
     Indication: PRODUCT USED FOR UNKNOWN INDICATION
     Route: 064

REACTIONS (33)
  - HYDROCEPHALUS [None]
  - VENTRICULAR SEPTAL DEFECT [None]
  - BLADDER DISORDER [None]
  - CEREBRAL DYSGENESIS [None]
  - NERVOUS SYSTEM DISORDER [None]
  - LIMB MALFORMATION [None]
  - BRACHYCEPHALY [None]
  - CEREBRAL VENTRICLE DILATATION [None]
  - MICROGNATHIA [None]
  - STILLBIRTH [None]
  - RENAL APLASIA [None]
  - EXPOSURE VIA SEMEN [None]
  - DYSMORPHISM [None]
  - CONGENITAL NOSE MALFORMATION [None]
  - BRAIN MALFORMATION [None]
  - SMALL FOR DATES BABY [None]
  - RENAL CYST [None]
  - GENITALIA EXTERNAL AMBIGUOUS [None]
  - DANDY-WALKER SYNDROME [None]
  - POLYHYDRAMNIOS [None]
  - TRISOMY 18 [None]
  - TALIPES [None]
  - CONGENITAL CARDIOVASCULAR ANOMALY [None]
  - CONGENITAL HAND MALFORMATION [None]
  - HYPOTELORISM OF ORBIT [None]
  - UMBILICAL CORD ABNORMALITY [None]
  - CLINODACTYLY [None]
  - HEAD CIRCUMFERENCE ABNORMAL [None]
  - AMNIOTIC FLUID VOLUME INCREASED [None]
  - HYDRONEPHROSIS [None]
  - CONGENITAL CENTRAL NERVOUS SYSTEM ANOMALY [None]
  - SMALL SIZE PLACENTA [None]
  - APGAR SCORE LOW [None]
